FAERS Safety Report 18947622 (Version 1)
Quarter: 2021Q1

REPORT INFORMATION
  Report Type: Other
  Country: JP (occurrence: JP)
  Receive Date: 20210226
  Receipt Date: 20210226
  Transmission Date: 20210420
  Serious: Yes (Other)
  Sender: FDA-Public Use
  Company Number: JP-ROCHE-2772495

PATIENT

DRUGS (18)
  1. RITONAVIR. [Suspect]
     Active Substance: RITONAVIR
     Indication: HEPATITIS C
     Route: 065
  2. BECLABUVIR [Suspect]
     Active Substance: BECLABUVIR
     Indication: HEPATITIS C
     Route: 065
  3. GRAZOPREVIR. [Suspect]
     Active Substance: GRAZOPREVIR
     Indication: HEPATITIS C
     Route: 065
  4. VELPATASVIR [Suspect]
     Active Substance: VELPATASVIR
     Indication: HEPATITIS C
     Route: 065
  5. BOCEPREVIR [Suspect]
     Active Substance: BOCEPREVIR
     Indication: HEPATITIS C
     Route: 065
  6. SIMEPREVIR [Suspect]
     Active Substance: SIMEPREVIR
     Indication: HEPATITIS C
     Route: 065
  7. ASUNAPREVIR [Suspect]
     Active Substance: ASUNAPREVIR
     Indication: HEPATITIS C
     Route: 065
  8. LEDIPASVIR [Suspect]
     Active Substance: LEDIPASVIR
     Indication: HEPATITIS C
     Route: 065
  9. OMBITASVIR [Suspect]
     Active Substance: OMBITASVIR
     Indication: HEPATITIS C
     Route: 065
  10. DACLATASVIR. [Suspect]
     Active Substance: DACLATASVIR
     Indication: HEPATITIS C
     Route: 065
  11. SOFOSBUVIR [Suspect]
     Active Substance: SOFOSBUVIR
     Indication: HEPATITIS C
     Route: 065
  12. DASABUVIR [Suspect]
     Active Substance: DASABUVIR
     Indication: HEPATITIS C
     Route: 065
  13. RIBAVIRIN. [Suspect]
     Active Substance: RIBAVIRIN
     Indication: HEPATITIS C
     Route: 065
  14. PARITAPREVIR [Suspect]
     Active Substance: PARITAPREVIR
     Indication: HEPATITIS C
     Route: 065
  15. ELBASVIR. [Suspect]
     Active Substance: ELBASVIR
     Indication: HEPATITIS C
     Route: 065
  16. TELAPREVIR [Suspect]
     Active Substance: TELAPREVIR
     Indication: HEPATITIS C
     Route: 065
  17. GLECAPREVIR [Suspect]
     Active Substance: GLECAPREVIR
     Indication: HEPATITIS C
     Route: 065
  18. PIBRENTASVIR [Suspect]
     Active Substance: PIBRENTASVIR
     Indication: HEPATITIS C
     Route: 065

REACTIONS (14)
  - Nausea [Unknown]
  - Rash [Unknown]
  - Viral infection [Unknown]
  - Fatigue [Unknown]
  - Liver injury [Unknown]
  - Pruritus [Unknown]
  - Insomnia [Unknown]
  - Myalgia [Unknown]
  - Anaemia [Unknown]
  - Arthralgia [Unknown]
  - Dyspnoea [Unknown]
  - Headache [Unknown]
  - Decreased appetite [Unknown]
  - Photosensitivity reaction [Unknown]
